FAERS Safety Report 6791013-3 (Version None)
Quarter: 2010Q2

REPORT INFORMATION
  Report Type: 
  Country: None (occurrence: None)
  Receive Date: 20100624
  Receipt Date: 20100616
  Transmission Date: 20101027
  Serious: Yes (Hospitalization)
  Sender: FDA-Public Use
  Company Number: DE-AMGEN-QUU419629

PATIENT
  Sex: Female
  Weight: 69 kg

DRUGS (9)
  1. ENBREL [Suspect]
     Indication: DRUG USE FOR UNKNOWN INDICATION
     Route: 058
     Dates: start: 20090728, end: 20091101
  2. ENBREL [Suspect]
     Route: 058
     Dates: start: 20091201, end: 20100501
  3. METOPROLOL TARTRATE [Concomitant]
     Indication: HYPERTENSION
     Route: 048
  4. RAMIPRIL [Concomitant]
     Indication: HYPERTENSION
     Route: 048
  5. PREDNISONE [Concomitant]
     Indication: RHEUMATOID ARTHRITIS
     Route: 058
  6. PREDNISONE [Concomitant]
     Route: 048
     Dates: end: 20091013
  7. PREDNISONE [Concomitant]
     Route: 048
     Dates: start: 20091014, end: 20091123
  8. PREDNISONE [Concomitant]
     Dosage: PUSH INJECTION OF 20MG/D, THEN TAPERED TO 5 MG DAILY
     Route: 048
     Dates: start: 20091124
  9. HYDROCHLOROTHIAZIDE [Concomitant]
     Indication: HYPERTENSION
     Route: 048

REACTIONS (3)
  - CONDITION AGGRAVATED [None]
  - DRUG INEFFECTIVE [None]
  - RHEUMATOID ARTHRITIS [None]
